FAERS Safety Report 11388230 (Version 6)
Quarter: 2015Q4

REPORT INFORMATION
  Report Type: Report from Study
  Country: US (occurrence: US)
  Receive Date: 20150817
  Receipt Date: 20151028
  Transmission Date: 20160304
  Serious: Yes (Other)
  Sender: FDA-Public Use
  Company Number: PHEH2015US015421

PATIENT
  Sex: Male

DRUGS (9)
  1. SULFAMETHOXAZOL W/TRIMETOPRIM [Concomitant]
     Active Substance: SULFAMETHOXAZOLE\TRIMETHOPRIM
     Indication: PROPHYLAXIS
     Route: 065
  2. HYDROXYUREA. [Suspect]
     Active Substance: HYDROXYUREA
     Indication: DESMOID TUMOUR
     Route: 065
  3. DACARBAZINE. [Suspect]
     Active Substance: DACARBAZINE
     Indication: DESMOID TUMOUR
     Route: 065
  4. GLEEVEC [Suspect]
     Active Substance: IMATINIB MESYLATE
     Indication: DESMOID TUMOUR
     Dosage: 200 MG, BID (2XAM/2XPM)
     Route: 065
  5. METHOTREXATE [Suspect]
     Active Substance: METHOTREXATE
     Indication: DESMOID TUMOUR
     Route: 065
  6. VINBLASTINE [Suspect]
     Active Substance: VINBLASTINE
     Indication: DESMOID TUMOUR
     Route: 065
  7. DOXIL [Suspect]
     Active Substance: DOXORUBICIN HYDROCHLORIDE
     Indication: DESMOID TUMOUR
     Route: 065
  8. SORAFENIB [Suspect]
     Active Substance: SORAFENIB
     Indication: DESMOID TUMOUR
     Route: 048
  9. RITALIN [Concomitant]
     Active Substance: METHYLPHENIDATE HYDROCHLORIDE
     Indication: PRODUCT USED FOR UNKNOWN INDICATION
     Route: 065

REACTIONS (9)
  - Tumour flare [Unknown]
  - Tumour invasion [Unknown]
  - Desmoid tumour [Unknown]
  - Malignant neoplasm progression [Unknown]
  - Off label use [Unknown]
  - Rash [Unknown]
  - Pyrexia [Unknown]
  - Pain [Unknown]
  - Drug ineffective [Unknown]
